FAERS Safety Report 6727350-8 (Version None)
Quarter: 2010Q2

REPORT INFORMATION
  Report Type: 
  Country: None (occurrence: None)
  Receive Date: 20100517
  Receipt Date: 20100511
  Transmission Date: 20101027
  Serious: Yes (Death)
  Sender: FDA-Public Use
  Company Number: TH-SANOFI-AVENTIS-2010SA024425

PATIENT
  Age: 64 Year
  Sex: Male
  Weight: 54 kg

DRUGS (2)
  1. ENOXAPARIN SODIUM [Suspect]
     Indication: PROPHYLAXIS
     Route: 040
     Dates: start: 20100427, end: 20100427
  2. PLAVIX [Suspect]
     Indication: PROPHYLAXIS
     Route: 048
     Dates: start: 20100427, end: 20100427

REACTIONS (2)
  - DRUG INEFFECTIVE [None]
  - THROMBOSIS [None]
